FAERS Safety Report 22643118 (Version 1)
Quarter: 2023Q2

REPORT INFORMATION
  Report Type: Spontaneous
  Country: US (occurrence: US)
  Receive Date: 20230627
  Receipt Date: 20230627
  Transmission Date: 20230722
  Serious: Yes (Hospitalization)
  Sender: FDA-Public Use
  Company Number: US-STRIDES ARCOLAB LIMITED-2022SP006514

PATIENT
  Age: 83 Year
  Sex: Female

DRUGS (8)
  1. VERAPAMIL [Suspect]
     Active Substance: VERAPAMIL HYDROCHLORIDE
     Indication: Hyperinsulinaemic hypoglycaemia
     Dosage: 80 MILLIGRAM, PER DAY
     Route: 065
  2. DIAZOXIDE [Suspect]
     Active Substance: DIAZOXIDE
     Indication: Hyperinsulinaemic hypoglycaemia
     Dosage: 100 MILLIGRAM, TID THREE TIMES DAILY
     Route: 065
  3. DIAZOXIDE [Suspect]
     Active Substance: DIAZOXIDE
     Dosage: 125 MILLIGRAM TID THREE TIMES DAILY
     Route: 065
  4. DIAZOXIDE [Suspect]
     Active Substance: DIAZOXIDE
     Dosage: UNK
     Route: 065
  5. OCTREOTIDE [Suspect]
     Active Substance: OCTREOTIDE
     Indication: Hyperinsulinaemic hypoglycaemia
     Dosage: 150 MICROGRAM, TID THREE TIMES DAILY
     Route: 065
  6. OCTREOTIDE [Suspect]
     Active Substance: OCTREOTIDE
     Dosage: 30 MILLIGRAM, ONCE A MONTH LONG ACTING RELEASE INJECTION
     Route: 030
  7. OCTREOTIDE [Suspect]
     Active Substance: OCTREOTIDE
     Dosage: 500 MICROGRAM, TID IMMEDIATE RELEASE FORMULATION AT THREE TIMES A DAY
     Route: 065
  8. LEVOTHYROXINE [Concomitant]
     Active Substance: LEVOTHYROXINE
     Indication: Hypothyroidism
     Dosage: 50 MICROGRAM, PER DAY
     Route: 065

REACTIONS (1)
  - Drug ineffective for unapproved indication [Unknown]
